FAERS Safety Report 20449458 (Version 1)
Quarter: 2022Q1

REPORT INFORMATION
  Report Type: Spontaneous
  Country: US (occurrence: None)
  Receive Date: 20220208
  Receipt Date: 20220208
  Transmission Date: 20220423
  Serious: Yes (Death)
  Sender: FDA-Public Use
  Company Number: None

PATIENT
  Sex: Male
  Weight: 66.22 kg

DRUGS (16)
  1. OCTREOTIDE [Suspect]
     Active Substance: OCTREOTIDE
     Indication: Neoplasm malignant
     Dosage: OTHER FREQUENCY : Q8H PRN;?
     Route: 058
  2. ALFUZOSIN [Concomitant]
     Active Substance: ALFUZOSIN
  3. PROTONIX [Concomitant]
     Active Substance: PANTOPRAZOLE SODIUM
  4. SIMVASTATIN [Concomitant]
     Active Substance: SIMVASTATIN
  5. LISINOPRIL [Concomitant]
     Active Substance: LISINOPRIL
  6. ACEBUTOLOL [Concomitant]
     Active Substance: ACEBUTOLOL
  7. MIRALAX [Concomitant]
     Active Substance: POLYETHYLENE GLYCOL 3350
  8. ALEVE [Concomitant]
     Active Substance: NAPROXEN SODIUM
  9. ASPIRIN [Concomitant]
     Active Substance: ASPIRIN
  10. CIPRO [Concomitant]
     Active Substance: CIPROFLOXACIN HYDROCHLORIDE
  11. CYPROHEPTADINE [Concomitant]
     Active Substance: CYPROHEPTADINE
  12. FLAGYL [Concomitant]
     Active Substance: METRONIDAZOLE\METRONIDAZOLE HYDROCHLORIDE
  13. TAMSULOSIN [Concomitant]
     Active Substance: TAMSULOSIN
  14. TEMAZEPAM [Concomitant]
     Active Substance: TEMAZEPAM
  15. SANDOSTATIN [Concomitant]
     Active Substance: OCTREOTIDE ACETATE
  16. UROXATRAL [Concomitant]
     Active Substance: ALFUZOSIN HYDROCHLORIDE

REACTIONS (1)
  - Death [None]
